FAERS Safety Report 5782476-0 (Version None)
Quarter: 2008Q2

REPORT INFORMATION
  Report Type: 
  Country: None (occurrence: None)
  Receive Date: 20080623
  Receipt Date: 20080219
  Transmission Date: 20081010
  Serious: No
  Sender: FDA-Public Use
  Company Number: US-AMGEN-KDL266079

PATIENT
  Sex: Male

DRUGS (3)
  1. ARANESP [Suspect]
     Indication: DIALYSIS
     Dates: start: 20070101
  2. ARANESP [Suspect]
  3. BENICAR [Concomitant]

REACTIONS (6)
  - BACK PAIN [None]
  - CARDIAC ENZYMES INCREASED [None]
  - CHEST PAIN [None]
  - EPISTAXIS [None]
  - HYPERTENSION [None]
  - VOMITING [None]
